FAERS Safety Report 10015126 (Version 3)
Quarter: 2014Q2

REPORT INFORMATION
  Report Type: Spontaneous
  Country: US (occurrence: US)
  Receive Date: 20140317
  Receipt Date: 20140411
  Transmission Date: 20141212
  Serious: Yes (Other)
  Sender: FDA-Public Use
  Company Number: US-BAXTER-2014BAX013346

PATIENT
  Age: 57 Year
  Sex: Male

DRUGS (1)
  1. DIANEAL LOW CALCIUM [Suspect]
     Indication: PERITONEAL DIALYSIS
     Route: 033
     Dates: start: 2012

REACTIONS (6)
  - Peritonitis bacterial [Recovered/Resolved]
  - Catheter site injury [Unknown]
  - Peritoneal dialysis complication [Recovered/Resolved]
  - Device related infection [Unknown]
  - Procedural pain [Unknown]
  - Catheter site infection [Unknown]
